FAERS Safety Report 9746097 (Version 2)
Quarter: 2013Q4

REPORT INFORMATION
  Report Type: Spontaneous
  Country: AT (occurrence: AT)
  Receive Date: 20131211
  Receipt Date: 20131211
  Transmission Date: 20140711
  Serious: No
  Sender: FDA-Public Use
  Company Number: AT-GILEAD-2009-0024321

PATIENT
  Age: 65 Year
  Sex: Male

DRUGS (4)
  1. ATRIPLA [Suspect]
     Indication: PRODUCT USED FOR UNKNOWN INDICATION
  2. NEXIUM [Suspect]
  3. TRUVADA [Concomitant]
     Indication: PRODUCT USED FOR UNKNOWN INDICATION
  4. STOCRIN [Concomitant]

REACTIONS (1)
  - Headache [Unknown]
